FAERS Safety Report 6052639-8 (Version None)
Quarter: 2009Q1

REPORT INFORMATION
  Report Type: 
  Country: None (occurrence: None)
  Receive Date: 20090127
  Receipt Date: 20090121
  Transmission Date: 20090719
  Serious: Yes (Other)
  Sender: FDA-Public Use
  Company Number: US-JNJFOC-20090105489

PATIENT
  Sex: Male

DRUGS (1)
  1. FENTANYL TRANSDERMAL SYSTEM [Suspect]
     Indication: DRUG USE FOR UNKNOWN INDICATION
     Route: 062

REACTIONS (7)
  - AMNESIA [None]
  - DRUG EFFECT INCREASED [None]
  - GASTRIC HAEMORRHAGE [None]
  - INSOMNIA [None]
  - NAUSEA [None]
  - RECTAL HAEMORRHAGE [None]
  - THERAPEUTIC RESPONSE DECREASED [None]
